FAERS Safety Report 8261651-X (Version None)
Quarter: 2012Q2

REPORT INFORMATION
  Report Type: 
  Country: None (occurrence: None)
  Receive Date: 20120405
  Receipt Date: 20120405
  Transmission Date: 20120825
  Serious: Yes (Life-Threatening)
  Sender: FDA-Public Use
  Company Number: None

PATIENT
  Age: 87 Year
  Sex: Female
  Weight: 73 kg

DRUGS (1)
  1. PRADAXA [Suspect]
     Indication: ATRIAL FIBRILLATION
     Dosage: 150 MG
     Route: 048
     Dates: start: 20120214, end: 20120331

REACTIONS (9)
  - HEAD INJURY [None]
  - SYNCOPE [None]
  - HAEMOGLOBIN DECREASED [None]
  - HAEMATOMA [None]
  - FALL [None]
  - DIZZINESS [None]
  - SUBARACHNOID HAEMORRHAGE [None]
  - BALANCE DISORDER [None]
  - PALPITATIONS [None]
